FAERS Safety Report 9505341 (Version 1)
Quarter: 2013Q1

REPORT INFORMATION
  Report Type: Spontaneous
  Country: US (occurrence: None)
  Receive Date: 20130220
  Receipt Date: 20130220
  Transmission Date: 20140127
  Serious: No
  Sender: FDA-Public Use
  Company Number: 1000040572

PATIENT
  Age: 66 Year
  Sex: Female

DRUGS (5)
  1. VIIBRYD ( VILAZODONE HYDROCHLORIDE) ( 10 MILLIGRAM, TABLETS) [Suspect]
     Indication: DEPRESSION
     Dosage: 10 MG, 1 IN 1 D)
     Route: 048
     Dates: start: 20121120
  2. CRESTOR (ROSUVASTATIN CALCIUM) (ROSUVASTATIN CALCIUM) [Concomitant]
  3. PREVACID (LANSOPRAZOLE) [Concomitant]
  4. ZANTAC (RANITIDINE HYDROCHLORIDE) [Concomitant]
  5. XANAX (ALPRAZOLAM) [Concomitant]

REACTIONS (2)
  - Nausea [None]
  - Diarrhoea [None]
